FAERS Safety Report 5672523-9 (Version None)
Quarter: 2008Q1

REPORT INFORMATION
  Report Type: 
  Country: None (occurrence: None)
  Receive Date: 20080318
  Receipt Date: 20080318
  Transmission Date: 20080703
  Serious: No
  Sender: FDA-Public Use
  Company Number: None

PATIENT
  Sex: Female
  Weight: 45 kg

DRUGS (2)
  1. CISPLATIN [Suspect]
     Dosage: 87 MG
  2. ERBITUX [Suspect]
     Dosage: 1314 MG

REACTIONS (1)
  - BLOOD MAGNESIUM ABNORMAL [None]
